FAERS Safety Report 8291978-7 (Version None)
Quarter: 2012Q2

REPORT INFORMATION
  Report Type: 
  Country: None (occurrence: None)
  Receive Date: 20120417
  Receipt Date: 20120410
  Transmission Date: 20120825
  Serious: Yes (Hospitalization, Other)
  Sender: FDA-Public Use
  Company Number: US-ELI_LILLY_AND_COMPANY-US201203006019

PATIENT
  Sex: Female

DRUGS (5)
  1. FORTEO [Suspect]
     Dosage: 20 UG, QD
  2. FORTEO [Suspect]
     Dosage: 20 UG, QD
     Dates: start: 20120304
  3. LIPITOR [Concomitant]
  4. FORTEO [Suspect]
     Indication: OSTEOPOROSIS
     Dosage: 20 UG, QD
     Dates: start: 20120301
  5. SUCRALFATE [Concomitant]
     Indication: GASTROINTESTINAL DISORDER

REACTIONS (7)
  - DEHYDRATION [None]
  - MUSCULAR WEAKNESS [None]
  - NAUSEA [None]
  - ULCER HAEMORRHAGE [None]
  - VOMITING [None]
  - RENAL FAILURE ACUTE [None]
  - FALL [None]
